FAERS Safety Report 12595257 (Version 1)
Quarter: 2016Q3

REPORT INFORMATION
  Report Type: Spontaneous
  Country: US (occurrence: US)
  Receive Date: 20160726
  Receipt Date: 20160726
  Transmission Date: 20161109
  Serious: No
  Sender: FDA-Public Use
  Company Number: US-ENDO PHARMACEUTICALS INC.-2015-002850

PATIENT
  Age: 62 Year
  Sex: Female
  Weight: 77.18 kg

DRUGS (1)
  1. LISINOPRIL TABLETS 40MG [Suspect]
     Active Substance: LISINOPRIL
     Indication: BLOOD PRESSURE MEASUREMENT
     Route: 048

REACTIONS (1)
  - Blood pressure increased [Recovered/Resolved]
